FAERS Safety Report 4865235-2 (Version None)
Quarter: 2005Q4

REPORT INFORMATION
  Report Type: 
  Country: None (occurrence: None)
  Receive Date: 20051223
  Receipt Date: 20051221
  Transmission Date: 20060501
  Serious: Yes (Other)
  Sender: FDA-Public Use
  Company Number: 2005-CZ-01357

PATIENT
  Age: 6 Year

DRUGS (1)
  1. BECLOMETHASONE DIPROPIONATE [Suspect]
     Indication: ASTHMA
     Route: 055

REACTIONS (4)
  - CHOKING [None]
  - COUGH [None]
  - DRUG DISPENSING ERROR [None]
  - DYSPNOEA [None]
